FAERS Safety Report 24559854 (Version 1)
Quarter: 2024Q4

REPORT INFORMATION
  Report Type: Spontaneous
  Country: BR (occurrence: BR)
  Receive Date: 20241029
  Receipt Date: 20241029
  Transmission Date: 20250115
  Serious: Yes (Hospitalization)
  Sender: STRIDES
  Company Number: BR-STRIDES ARCOLAB LIMITED-2024SP013709

PATIENT
  Age: 69 Year
  Sex: Male

DRUGS (2)
  1. METHOTREXATE [Suspect]
     Active Substance: METHOTREXATE
     Indication: Psoriasis
     Dosage: 2.5 MILLIGRAM, EVERY MORNING (THREE PILLS IN THE MORNING (TOTALLING 105 MG PER WEEK FOR A MONTH, SIG
     Route: 065
  2. METHOTREXATE [Suspect]
     Active Substance: METHOTREXATE
     Dosage: 2.5 MILLIGRAM, (THREE PILLS IN THE EVENING (TOTALLING 105 MG PER WEEK FOR A MONTH, SIGNIFICANTLY EXC
     Route: 065

REACTIONS (20)
  - Organ failure [Unknown]
  - Fluid intake reduced [Unknown]
  - Decreased appetite [Unknown]
  - Dehydration [Unknown]
  - Pancytopenia [Unknown]
  - Stomatitis [Unknown]
  - Myelosuppression [Unknown]
  - Leukopenia [Unknown]
  - Thrombocytopenia [Unknown]
  - Hepatic failure [Unknown]
  - Hepatic function abnormal [Unknown]
  - Acute kidney injury [Unknown]
  - Fatigue [Unknown]
  - Skin lesion [Unknown]
  - Erythema [Unknown]
  - Blister [Unknown]
  - Skin necrosis [Unknown]
  - Toxicity to various agents [Unknown]
  - Accidental overdose [Unknown]
  - Wrong dose [Unknown]
